FAERS Safety Report 6077468-0 (Version None)
Quarter: 2009Q1

REPORT INFORMATION
  Report Type: 
  Country: None (occurrence: None)
  Receive Date: 20090213
  Receipt Date: 20090105
  Transmission Date: 20090719
  Serious: No
  Sender: FDA-Public Use
  Company Number: A0758108A

PATIENT
  Age: 26 Year
  Sex: Female
  Weight: 97.7 kg

DRUGS (3)
  1. TREXIMET [Suspect]
     Indication: MIGRAINE
     Dosage: 1TAB PER DAY
     Route: 048
     Dates: start: 20080903
  2. AMITRIPTYLINE HCL [Concomitant]
     Indication: MIGRAINE
     Route: 048
     Dates: start: 20070814
  3. HYDROCODONE BITARTRATE [Concomitant]

REACTIONS (13)
  - BLOOD CREATINE PHOSPHOKINASE ABNORMAL [None]
  - BLOOD MAGNESIUM ABNORMAL [None]
  - BLOOD UREA DECREASED [None]
  - CHEST DISCOMFORT [None]
  - CHEST PAIN [None]
  - HEADACHE [None]
  - HYPOAESTHESIA FACIAL [None]
  - MUSCLE TIGHTNESS [None]
  - NAUSEA [None]
  - PALPITATIONS [None]
  - PARAESTHESIA [None]
  - SUPRAVENTRICULAR EXTRASYSTOLES [None]
  - TROPONIN [None]
